FAERS Safety Report 6373866-6 (Version None)
Quarter: 2009Q3

REPORT INFORMATION
  Report Type: 
  Country: None (occurrence: None)
  Receive Date: 20090924
  Receipt Date: 20090512
  Transmission Date: 20100115
  Serious: Yes (Other)
  Sender: FDA-Public Use
  Company Number: US-ASTRAZENECA-2009UW12198

PATIENT
  Age: 56 Year
  Sex: Male
  Weight: 79.8 kg

DRUGS (5)
  1. SEROQUEL [Suspect]
     Indication: SCHIZOPHRENIA, PARANOID TYPE
     Route: 048
     Dates: start: 20090424
  2. ZYPREXA [Concomitant]
     Route: 048
  3. DEPAKOTE [Concomitant]
     Route: 048
  4. NEURONTIN [Concomitant]
     Route: 048
  5. COGENTIN [Concomitant]
     Route: 048

REACTIONS (5)
  - AGGRESSION [None]
  - AGITATION [None]
  - HOSTILITY [None]
  - IRRITABILITY [None]
  - PARKINSONISM [None]
